FAERS Safety Report 16188021 (Version 6)
Quarter: 2025Q4

REPORT INFORMATION
  Report Type: Spontaneous
  Country: EU (occurrence: EU)
  Receive Date: 20190412
  Receipt Date: 20251222
  Transmission Date: 20260117
  Serious: Yes (Hospitalization, Other)
  Sender: AUROBINDO
  Company Number: EU-AUROBINDO-AUR-APL-2019-018907

PATIENT
  Age: 69 Year
  Sex: Male

DRUGS (13)
  1. VORICONAZOLE [Interacting]
     Active Substance: VORICONAZOLE
     Indication: Bronchopulmonary aspergillosis
     Dosage: UNK
  2. VORICONAZOLE [Interacting]
     Active Substance: VORICONAZOLE
     Indication: Acute respiratory distress syndrome
     Dosage: 300 MILLIGRAM, TWO TIMES A DAY
  3. VORICONAZOLE [Interacting]
     Active Substance: VORICONAZOLE
     Dosage: 350 MILLIGRAM
     Route: 065
  4. VORICONAZOLE [Interacting]
     Active Substance: VORICONAZOLE
     Dosage: 600 MILLIGRAM, ONCE A DAY
  5. VORICONAZOLE [Interacting]
     Active Substance: VORICONAZOLE
     Dosage: 300 MILLIGRAM, ONCE A DAY
  6. VORICONAZOLE [Interacting]
     Active Substance: VORICONAZOLE
     Dosage: 300 MILLIGRAM, 0.5 DAYS
  7. IBRUTINIB [Suspect]
     Active Substance: IBRUTINIB
     Indication: Product used for unknown indication
     Dosage: UNK
     Route: 065
  8. ISAVUCONAZOLE [Interacting]
     Active Substance: ISAVUCONAZOLE
     Indication: Cerebral aspergillosis
     Dosage: 300 MILLIGRAM, ONCE A DAY
     Route: 065
  9. ISAVUCONAZOLE [Interacting]
     Active Substance: ISAVUCONAZOLE
     Indication: Brain oedema
  10. METHYLPREDNISOLONE [Interacting]
     Active Substance: METHYLPREDNISOLONE
     Indication: Cerebral aspergillosis
     Dosage: UNK
     Route: 065
  11. METHYLPREDNISOLONE [Interacting]
     Active Substance: METHYLPREDNISOLONE
     Indication: Brain oedema
  12. IMMUNGLOBULINad [Concomitant]
     Indication: Product used for unknown indication
     Dosage: UNK
     Route: 065
  13. AMPHOTERICIN B [Concomitant]
     Active Substance: AMPHOTERICIN B
     Indication: Product used for unknown indication
     Dosage: UNK
     Route: 065

REACTIONS (6)
  - Drug level decreased [Recovered/Resolved]
  - Drug interaction [Recovered/Resolved]
  - Cerebral aspergillosis [Unknown]
  - Drug level below therapeutic [Unknown]
  - Aspergillus test positive [Recovered/Resolved]
  - Treatment failure [Recovered/Resolved]
